FAERS Safety Report 24613680 (Version 2)
Quarter: 2025Q3

REPORT INFORMATION
  Report Type: Spontaneous
  Country: EU (occurrence: EU)
  Receive Date: 20241113
  Receipt Date: 20250809
  Transmission Date: 20251021
  Serious: Yes (Other)
  Sender: ALEXION PHARMACEUTICALS
  Company Number: EU-AstraZeneca-CH-00722526A

PATIENT
  Sex: Female

DRUGS (1)
  1. DAPAGLIFLOZIN [Suspect]
     Active Substance: DAPAGLIFLOZIN

REACTIONS (5)
  - Nephrolithiasis [Unknown]
  - Bile duct stenosis [Unknown]
  - Diverticulitis [Unknown]
  - Renal cyst [Unknown]
  - Hepatomegaly [Unknown]
